FAERS Safety Report 5865884-9 (Version None)
Quarter: 2008Q3

REPORT INFORMATION
  Report Type: 
  Country: None (occurrence: None)
  Receive Date: 20080829
  Receipt Date: 20080818
  Transmission Date: 20090109
  Serious: Yes (Death)
  Sender: FDA-Public Use
  Company Number: US-PFIZER INC-2006054404

PATIENT
  Sex: Male

DRUGS (4)
  1. BEXTRA [Suspect]
     Indication: ARTHRITIS
     Route: 065
  2. ADVIL LIQUI-GELS [Concomitant]
     Route: 065
  3. ASPIRIN [Concomitant]
     Route: 065
  4. ULTRAM [Concomitant]
     Route: 065

REACTIONS (1)
  - ARRHYTHMIA [None]
